FAERS Safety Report 5980771-3 (Version None)
Quarter: 2008Q4

REPORT INFORMATION
  Report Type: 
  Country: None (occurrence: None)
  Receive Date: 20081205
  Receipt Date: 20080414
  Transmission Date: 20090506
  Serious: No
  Sender: FDA-Public Use
  Company Number: A0722494A

PATIENT
  Age: 21 Year
  Sex: Female

DRUGS (1)
  1. COMMIT [Suspect]
     Dates: start: 20080407

REACTIONS (3)
  - BLISTER [None]
  - ORAL PAIN [None]
  - OROPHARYNGEAL BLISTERING [None]
